FAERS Safety Report 6686874-2 (Version None)
Quarter: 2010Q2

REPORT INFORMATION
  Report Type: 
  Country: None (occurrence: None)
  Receive Date: 20100419
  Receipt Date: 20100415
  Transmission Date: 20101027
  Serious: Yes (Death, Life-Threatening, Hospitalization, Other)
  Sender: FDA-Public Use
  Company Number: TR-BRISTOL-MYERS SQUIBB COMPANY-15065378

PATIENT
  Age: 56 Year
  Sex: Male
  Weight: 82 kg

DRUGS (17)
  1. CISPLATIN [Suspect]
     Indication: NON-SMALL CELL LUNG CANCER
     Dosage: DAY 1 EVERY 21 DAYS
     Route: 042
     Dates: start: 20100329
  2. ALIMTA [Suspect]
     Indication: NON-SMALL CELL LUNG CANCER
     Dosage: DAY 1 EVERY 21 DAYS
     Route: 042
     Dates: start: 20100329
  3. FOLIC ACID [Concomitant]
     Dates: start: 20100324
  4. VITAMIN B-12 [Concomitant]
     Dates: start: 20100324, end: 20100324
  5. DEXAMETHASONE [Concomitant]
     Dates: start: 20100328, end: 20100330
  6. GLIMEPIRIDE [Concomitant]
     Indication: DIABETES MELLITUS
     Dates: end: 20100325
  7. METFORMIN HCL [Concomitant]
     Indication: DIABETES MELLITUS
     Dates: end: 20100325
  8. IRBESARTAN [Concomitant]
     Indication: HYPERTENSION
  9. METOPROLOL TARTRATE [Concomitant]
     Indication: HYPERTENSION
  10. LEVOTHYROXINE SODIUM [Concomitant]
     Indication: THYROIDECTOMY
  11. INSULIN ZINC SUSPENSION [Concomitant]
     Indication: DIABETES MELLITUS
     Dates: start: 20100325
  12. ISOPHANE INSULIN [Concomitant]
     Indication: DIABETES MELLITUS
     Dosage: NPH INSULIN INJECTION
     Dates: start: 20100325
  13. ZOPICLONE [Concomitant]
     Indication: PROPHYLAXIS
     Dates: start: 20100329, end: 20100402
  14. ALPRAZOLAM [Concomitant]
     Indication: PROPHYLAXIS
     Dates: start: 20100329, end: 20100402
  15. AMOXICILLIN [Concomitant]
     Indication: PROPHYLAXIS
     Dates: start: 20100329, end: 20100402
  16. CLAVULANATE POTASSIUM [Concomitant]
     Indication: PROPHYLAXIS
     Dates: start: 20100329, end: 20100402
  17. LANSOPRAZOLE [Concomitant]
     Indication: PROPHYLAXIS
     Dates: start: 20100329, end: 20100402

REACTIONS (3)
  - FALL [None]
  - PULMONARY EMBOLISM [None]
  - SUDDEN DEATH [None]
